FAERS Safety Report 10606422 (Version 1)
Quarter: 2014Q4

REPORT INFORMATION
  Report Type: Spontaneous
  Country: IN (occurrence: None)
  Receive Date: 20141121
  Receipt Date: 20141121
  Transmission Date: 20150529
  Serious: Yes (Other)
  Sender: FDA-Public Use
  Company Number: FK201405284

PATIENT
  Age: 45 Year
  Sex: Male

DRUGS (4)
  1. AMITRIPTYLINE [Concomitant]
     Active Substance: AMITRIPTYLINE
  2. LIDOCAINE 2 % (MANUFACTURER UNKNOWN) (LIDOCAINE) (LIDOCAINE) [Suspect]
     Active Substance: LIDOCAINE
     Indication: LOCAL ANAESTHESIA
     Dosage: 1 IN 1  TOTAL, PERINEURAL
  3. CARBAMAZEPINE. [Concomitant]
     Active Substance: CARBAMAZEPINE
  4. PREGABALIN. [Concomitant]
     Active Substance: PREGABALIN

REACTIONS (8)
  - Blood pressure increased [None]
  - Vomiting [None]
  - Bradycardia [None]
  - Hypoaesthesia [None]
  - Dizziness [None]
  - Nystagmus [None]
  - Nausea [None]
  - Hyperhidrosis [None]
